FAERS Safety Report 20321634 (Version 1)
Quarter: 2022Q1

REPORT INFORMATION
  Report Type: Spontaneous
  Country: JP (occurrence: None)
  Receive Date: 20220111
  Receipt Date: 20220111
  Transmission Date: 20220423
  Serious: Yes (Hospitalization)
  Sender: FDA-Public Use
  Company Number: JP-MICRO LABS LIMITED-ML2022-00004

PATIENT
  Age: 68 Year
  Sex: Male

DRUGS (9)
  1. LEVETIRACETAM [Suspect]
     Active Substance: LEVETIRACETAM
     Indication: Seizure
     Dosage: EVERY 12 H AT 500 MG/DOSE UNTIL DAY 5
     Route: 042
  2. LEVETIRACETAM [Suspect]
     Active Substance: LEVETIRACETAM
     Dosage: IN SECOND HOSPITALIZATION
     Route: 042
  3. LEVETIRACETAM [Suspect]
     Active Substance: LEVETIRACETAM
     Dosage: EVERY 12 H AT 500 MG/DOSE UNTIL DAY 5
     Route: 048
  4. DIAZEPAM [Concomitant]
     Active Substance: DIAZEPAM
     Indication: Seizure
  5. VALPROIC ACID [Concomitant]
     Active Substance: VALPROIC ACID
     Indication: Seizure
     Dosage: 400 MG/DOSE EVERY 12 H
  6. VALPROIC ACID [Concomitant]
     Active Substance: VALPROIC ACID
     Dosage: AT 200 MG/DOSE EVERY 6
  7. VALPROIC ACID [Concomitant]
     Active Substance: VALPROIC ACID
     Dosage: INCREASED TO 600 MG/DOSE EVERY 12 H
  8. WARFARIN [Concomitant]
     Active Substance: WARFARIN
     Dosage: 1.5 MG/DOSE EVERY 24 H
  9. WARFARIN [Concomitant]
     Active Substance: WARFARIN
     Dosage: 1 MG/DOSE EVERY 24 H

REACTIONS (5)
  - Dehydration [Recovered/Resolved]
  - Drug level increased [Unknown]
  - Decreased appetite [Unknown]
  - Somnolence [Unknown]
  - Anger [Unknown]
